FAERS Safety Report 7362561-2 (Version None)
Quarter: 2011Q1

REPORT INFORMATION
  Report Type: 
  Country: None (occurrence: None)
  Receive Date: 20110320
  Receipt Date: 20100806
  Transmission Date: 20110831
  Serious: Yes (Hospitalization, Other)
  Sender: FDA-Public Use
  Company Number: US-BAYER-201016021NA

PATIENT
  Sex: Female
  Weight: 113.64 kg

DRUGS (8)
  1. DARVOCET-N 100 [Concomitant]
     Dosage: UNK UNK, PRN
  2. YAZ [Suspect]
     Indication: PRODUCT USED FOR UNKNOWN INDICATION
     Route: 048
  3. FEOSOL [Concomitant]
     Dosage: 325 MG, QD
  4. YASMIN [Suspect]
     Indication: PRODUCT USED FOR UNKNOWN INDICATION
     Dosage: UNK UNK, UNK
     Route: 048
     Dates: start: 20051101, end: 20060301
  5. LEVOTHYROXINE [Concomitant]
     Dosage: UNK
     Dates: start: 20060101
  6. IRON [Concomitant]
  7. LUPRON [Concomitant]
  8. SYNTHROID [Concomitant]
     Dosage: 0.075 MG, QD

REACTIONS (3)
  - PULMONARY EMBOLISM [None]
  - GALLBLADDER INJURY [None]
  - INJURY [None]
